FAERS Safety Report 7067738-1 (Version None)
Quarter: 2010Q4

REPORT INFORMATION
  Report Type: 
  Country: None (occurrence: None)
  Receive Date: 20101028
  Receipt Date: 20101022
  Transmission Date: 20110411
  Serious: Yes (Hospitalization)
  Sender: FDA-Public Use
  Company Number: IT-MPIJNJ-2010-05380

PATIENT

DRUGS (1)
  1. VELCADE [Suspect]
     Indication: MULTIPLE MYELOMA
     Dosage: 1.7 MG, UNK
     Route: 042
     Dates: start: 20100811, end: 20100901

REACTIONS (1)
  - GALLBLADDER PERFORATION [None]
